FAERS Safety Report 14794204 (Version 1)
Quarter: 2018Q2

REPORT INFORMATION
  Report Type: Spontaneous
  Country: DE (occurrence: DE)
  Receive Date: 20180423
  Receipt Date: 20180423
  Transmission Date: 20180711
  Serious: Yes (Hospitalization, Other)
  Sender: FDA-Public Use
  Company Number: DE-MYLANLABS-2018M1025499

PATIENT
  Age: 49 Year
  Sex: Female

DRUGS (2)
  1. AZATHIOPRINE. [Suspect]
     Active Substance: AZATHIOPRINE
     Indication: AUTOIMMUNE HEPATITIS
  2. MAXIM                              /01257001/ [Interacting]
     Active Substance: DIENOGEST\ETHINYL ESTRADIOL
     Indication: ORAL CONTRACEPTION
     Dosage: 1 DF, QD
     Route: 048

REACTIONS (10)
  - Pleural effusion [Unknown]
  - Helicobacter gastritis [Unknown]
  - Dyspnoea exertional [Unknown]
  - Duodenal ulcer [Unknown]
  - Abnormal loss of weight [Unknown]
  - Pleurisy [Unknown]
  - Pneumonia [Unknown]
  - Atelectasis [Unknown]
  - Pulmonary embolism [Unknown]
  - Drug interaction [Unknown]

NARRATIVE: CASE EVENT DATE: 201707
